FAERS Safety Report 21490079 (Version 4)
Quarter: 2024Q2

REPORT INFORMATION
  Report Type: Other
  Country: DE (occurrence: None)
  Receive Date: 20221021
  Receipt Date: 20240516
  Transmission Date: 20240717
  Serious: Yes (Other)
  Sender: FDA-Public Use
  Company Number: DE-ROCHE-3203820

PATIENT
  Age: 57 Year
  Sex: Female
  Weight: 70 kg

DRUGS (18)
  1. OCREVUS [Suspect]
     Active Substance: OCRELIZUMAB
     Indication: Relapsing multiple sclerosis
     Route: 042
     Dates: start: 20191021, end: 20191104
  2. OCREVUS [Suspect]
     Active Substance: OCRELIZUMAB
     Route: 042
     Dates: start: 20210608, end: 20210728
  3. OCREVUS [Suspect]
     Active Substance: OCRELIZUMAB
     Route: 042
     Dates: start: 20220114
  4. MAGNESIUM [Concomitant]
     Active Substance: MAGNESIUM
     Indication: Migraine
     Dates: start: 201607
  5. DIMETHYL FUMARATE [Concomitant]
     Active Substance: DIMETHYL FUMARATE
     Indication: Multiple sclerosis
     Route: 048
     Dates: start: 20200515, end: 20200525
  6. BOTULINUM TOXIN NOS [Concomitant]
     Active Substance: BOTULINUM TOXIN NOS
     Indication: Migraine
     Dates: start: 201806
  7. ASPIRIN [Concomitant]
     Active Substance: ASPIRIN
     Route: 048
  8. PANTOZOL [Concomitant]
     Active Substance: PANTOPRAZOLE SODIUM
     Indication: Prophylaxis
     Route: 048
  9. TERIFLUNOMIDE [Concomitant]
     Active Substance: TERIFLUNOMIDE
     Indication: Multiple sclerosis
     Route: 048
     Dates: start: 20210211, end: 20210305
  10. TERIFLUNOMIDE [Concomitant]
     Active Substance: TERIFLUNOMIDE
     Route: 048
     Dates: start: 20200525, end: 20210130
  11. AMITRIPTYLINE [Concomitant]
     Active Substance: AMITRIPTYLINE
     Indication: Migraine
     Dates: start: 20150128
  12. CANDESARTAN [Concomitant]
     Active Substance: CANDESARTAN
     Indication: Hypertonia
     Route: 048
     Dates: start: 202302, end: 202304
  13. CANDESARTAN [Concomitant]
     Active Substance: CANDESARTAN
     Indication: Hypertonia
     Route: 048
     Dates: start: 202304
  14. METOPROLOL [Concomitant]
     Active Substance: METOPROLOL
     Indication: Migraine
     Route: 048
  15. TOPIRAMATE [Concomitant]
     Active Substance: TOPIRAMATE
     Indication: Migraine
     Dates: start: 20160506
  16. DIMENHYDRINATE [Concomitant]
     Active Substance: DIMENHYDRINATE
     Route: 048
  17. ALLEGRO [Concomitant]
     Indication: Migraine
  18. AUBAGIO [Concomitant]
     Active Substance: TERIFLUNOMIDE
     Indication: Multiple sclerosis
     Route: 048
     Dates: start: 20200525, end: 20210131

REACTIONS (2)
  - Intervertebral discitis [Recovered/Resolved]
  - COVID-19 [Recovered/Resolved]

NARRATIVE: CASE EVENT DATE: 20220728
